FAERS Safety Report 4577522-6 (Version None)
Quarter: 2005Q1

REPORT INFORMATION
  Report Type: 
  Country: None (occurrence: None)
  Receive Date: 20050208
  Receipt Date: 20050125
  Transmission Date: 20050727
  Serious: Yes (Hospitalization)
  Sender: FDA-Public Use
  Company Number: JP-2004-028057

PATIENT
  Age: 37 Year
  Sex: Female

DRUGS (6)
  1. BETAFERON (INTERFERON BETA 1B) [Suspect]
     Indication: MULTIPLE SCLEROSIS
     Dosage: SEE IMAGE
     Route: 058
     Dates: start: 20031113, end: 20040630
  2. BETAFERON (INTERFERON BETA 1B) [Suspect]
     Indication: MULTIPLE SCLEROSIS
     Dosage: SEE IMAGE
     Route: 058
     Dates: start: 20040701, end: 20040811
  3. METHYCOBAL (MECOBALAMIN) [Concomitant]
  4. JUVELA NICOTINATE [Concomitant]
  5. ACETYLSALICYLIC ACID SRT [Suspect]
  6. DANTRIUM [Concomitant]

REACTIONS (5)
  - ERYTHEMA [None]
  - INJECTION SITE NECROSIS [None]
  - INJECTION SITE ULCER [None]
  - PLATELET COUNT DECREASED [None]
  - WHITE BLOOD CELL COUNT DECREASED [None]
